FAERS Safety Report 24438476 (Version 1)
Quarter: 2024Q4

REPORT INFORMATION
  Report Type: Spontaneous
  Country: BR (occurrence: BR)
  Receive Date: 20241015
  Receipt Date: 20241015
  Transmission Date: 20250115
  Serious: Yes (Hospitalization, Other)
  Sender: BAYER HEALTHCARE PHARMACEUTICALS INC.
  Company Number: BR-BAYER-2024A144091

PATIENT
  Age: 31 Year
  Sex: Female

DRUGS (2)
  1. MIRENA [Suspect]
     Active Substance: LEVONORGESTREL
     Indication: Dysmenorrhoea
     Dosage: 20?G/DAY
     Route: 015
     Dates: start: 20230606, end: 20240109
  2. MINOXIDIL;TRETINOIN [Concomitant]
     Indication: Alopecia
     Dosage: UNK
     Dates: start: 20230205

REACTIONS (10)
  - Gastrointestinal inflammation [Recovered/Resolved with Sequelae]
  - Intestinal haemorrhage [Recovered/Resolved]
  - Alopecia [Recovered/Resolved with Sequelae]
  - Acne cystic [Recovered/Resolved with Sequelae]
  - Abdominal distension [Recovered/Resolved]
  - Nasopharyngitis [Recovered/Resolved]
  - Breast pain [Recovered/Resolved]
  - Pain in extremity [Recovered/Resolved]
  - Hirsutism [Recovering/Resolving]
  - Constipation [None]

NARRATIVE: CASE EVENT DATE: 20230606
